FAERS Safety Report 11213553 (Version 1)
Quarter: 2015Q2

REPORT INFORMATION
  Report Type: Spontaneous
  Country: US (occurrence: US)
  Receive Date: 20150623
  Receipt Date: 20150623
  Transmission Date: 20150821
  Serious: No
  Sender: FDA-Public Use
  Company Number: US-ELI_LILLY_AND_COMPANY-US200908004065

PATIENT
  Sex: Female

DRUGS (5)
  1. FORTEO [Suspect]
     Active Substance: TERIPARATIDE
     Dosage: 20 UG, UNKNOWN
     Dates: start: 2009, end: 2009
  2. FORTEO [Suspect]
     Active Substance: TERIPARATIDE
     Dosage: 20 UG, UNKNOWN
     Dates: start: 2009
  3. FORTEO [Suspect]
     Active Substance: TERIPARATIDE
     Dosage: 20 UG, UNKNOWN
     Dates: start: 2009, end: 2009
  4. FORTEO [Suspect]
     Active Substance: TERIPARATIDE
     Indication: OSTEOPOROSIS
     Dosage: 20 UG, UNKNOWN
     Dates: start: 20090804
  5. FORTEO [Suspect]
     Active Substance: TERIPARATIDE
     Dosage: 20 UG, UNKNOWN
     Dates: end: 2010

REACTIONS (15)
  - Hearing impaired [Not Recovered/Not Resolved]
  - Contusion [Not Recovered/Not Resolved]
  - Injection site haemorrhage [Recovered/Resolved]
  - Fatigue [Not Recovered/Not Resolved]
  - Dizziness [Recovered/Resolved]
  - Presyncope [Unknown]
  - Capillary fragility [Not Recovered/Not Resolved]
  - Palpitations [Recovered/Resolved]
  - Gastrooesophageal reflux disease [Unknown]
  - Injection site mass [Not Recovered/Not Resolved]
  - Frustration [Not Recovered/Not Resolved]
  - Injection site bruising [Recovered/Resolved]
  - Diarrhoea [Recovered/Resolved]
  - Asthenia [Unknown]
  - Disability [Unknown]

NARRATIVE: CASE EVENT DATE: 2009
